FAERS Safety Report 6306802-9 (Version None)
Quarter: 2009Q3

REPORT INFORMATION
  Report Type: 
  Country: None (occurrence: None)
  Receive Date: 20090811
  Receipt Date: 20090811
  Transmission Date: 20100115
  Serious: Yes (Other)
  Sender: FDA-Public Use
  Company Number: None

PATIENT
  Age: 62 Year
  Sex: Female
  Weight: 72.5755 kg

DRUGS (8)
  1. SIMVASTATIN [Suspect]
     Indication: BLOOD CHOLESTEROL INCREASED
     Dosage: 10 MG 1 X DAY ORAL
     Route: 048
     Dates: start: 20090401, end: 20090501
  2. ARIMIDEX [Concomitant]
  3. DIOVAN [Concomitant]
  4. SINGULAIR [Concomitant]
  5. NEXIUM [Concomitant]
  6. NEXIUM [Concomitant]
  7. SYMBICORT [Concomitant]
  8. ALBUTEROL [Concomitant]

REACTIONS (5)
  - ARTHRALGIA [None]
  - BACK PAIN [None]
  - BONE PAIN [None]
  - JOINT INSTABILITY [None]
  - MYALGIA [None]
